FAERS Safety Report 15790756 (Version 2)
Quarter: 2019Q1

REPORT INFORMATION
  Report Type: Spontaneous
  Country: JP (occurrence: JP)
  Receive Date: 20190104
  Receipt Date: 20190116
  Transmission Date: 20190417
  Serious: No
  Sender: FDA-Public Use
  Company Number: JP-TEVA-2018-JP-007075J

PATIENT
  Age: 6 Year
  Sex: Male
  Weight: 20 kg

DRUGS (2)
  1. COCARL [Concomitant]
     Active Substance: ACETAMINOPHEN
     Route: 065
  2. CEFAZOLIN SODIUM FOR INJECTION 0.5G ^TAIYO^ [Suspect]
     Active Substance: CEFAZOLIN SODIUM
     Indication: INFECTION PROPHYLAXIS
     Dosage: .5 GRAM DAILY;
     Route: 041
     Dates: start: 20180806, end: 20180806

REACTIONS (3)
  - Erythema [Unknown]
  - Rash [Unknown]
  - Eczema [Unknown]

NARRATIVE: CASE EVENT DATE: 20180806
